FAERS Safety Report 8935501 (Version 1)
Quarter: 2012Q4

REPORT INFORMATION
  Report Type: Spontaneous
  Country: US (occurrence: None)
  Receive Date: 20121128
  Receipt Date: 20121128
  Transmission Date: 20130627
  Serious: Yes (Disabling, Other)
  Sender: FDA-Public Use
  Company Number: None

PATIENT
  Age: 32 Year
  Sex: Female
  Weight: 56.7 kg

DRUGS (1)
  1. TOPAMAX [Suspect]
     Indication: ACUTE ANGLE CLOSURE GLAUCOMA
     Dosage: 25MG 1x per day po
     Route: 048
     Dates: start: 20121101, end: 20121109

REACTIONS (1)
  - Blindness [None]
